FAERS Safety Report 10380643 (Version 5)
Quarter: 2014Q3

REPORT INFORMATION
  Report Type: Spontaneous
  Country: DE (occurrence: DE)
  Receive Date: 20140813
  Receipt Date: 20140908
  Transmission Date: 20150326
  Serious: Yes (Death, Life-Threatening, Hospitalization, Other)
  Sender: FDA-Public Use
  Company Number: PHHY2014DE094760

PATIENT
  Age: 85 Year
  Sex: Male
  Weight: 76 kg

DRUGS (10)
  1. SITAGLIPTIN [Concomitant]
     Active Substance: SITAGLIPTIN
     Indication: DIABETES MELLITUS
     Dosage: 100 MG, UNK
     Route: 048
  2. METOPROLOL [Concomitant]
     Active Substance: METOPROLOL
     Indication: HYPERTENSION
     Dosage: 47.5 MG, UNK
     Route: 048
  3. LISINOPRIL. [Concomitant]
     Active Substance: LISINOPRIL
     Indication: HYPERTENSION
     Dosage: 5 MG, UNK
     Route: 048
  4. EUTHYROX [Concomitant]
     Active Substance: LEVOTHYROXINE SODIUM
     Indication: HYPOTHYROIDISM
     Dosage: 100 MG, UNK
     Route: 048
  5. METFORMIN [Concomitant]
     Active Substance: METFORMIN HYDROCHLORIDE
     Indication: DIABETES MELLITUS
     Dosage: 1700 MG, UNK
     Route: 048
  6. EXJADE [Suspect]
     Active Substance: DEFERASIROX
     Indication: MYELODYSPLASTIC SYNDROME
     Dosage: 1000 MG, DAILY
     Route: 048
     Dates: start: 201304, end: 20140706
  7. ALLOPURINOL. [Concomitant]
     Active Substance: ALLOPURINOL
     Indication: HYPERURICAEMIA
     Dosage: 300 MG, UNK
  8. TORASEMIDE [Concomitant]
     Active Substance: TORSEMIDE
     Indication: HYPERTENSION
     Dosage: 10 MG, UNK
  9. HERZASS [Concomitant]
     Indication: HYPERTENSIVE HEART DISEASE
     Dosage: 100 MG, UNK
     Route: 048
  10. GLIMEPIRIDE. [Concomitant]
     Active Substance: GLIMEPIRIDE
     Indication: DIABETES MELLITUS
     Dosage: 4 MG, UNK

REACTIONS (13)
  - Acute hepatic failure [Fatal]
  - Hepatic cirrhosis [Fatal]
  - Jaundice [Fatal]
  - Ascites [Fatal]
  - Renal failure acute [Fatal]
  - Chromaturia [Fatal]
  - Hepatorenal syndrome [Fatal]
  - Pyrexia [Fatal]
  - Localised intraabdominal fluid collection [Fatal]
  - Faeces pale [Fatal]
  - Fatigue [Fatal]
  - Metabolic acidosis [Fatal]
  - Pruritus [Fatal]

NARRATIVE: CASE EVENT DATE: 20140707
